FAERS Safety Report 15049828 (Version 3)
Quarter: 2018Q4

REPORT INFORMATION
  Report Type: Spontaneous
  Country: JP (occurrence: JP)
  Receive Date: 20180622
  Receipt Date: 20181021
  Transmission Date: 20190204
  Serious: Yes (Death, Hospitalization)
  Sender: FDA-Public Use
  Company Number: JP-B.I. PHARMACEUTICALS,INC./RIDGEFIELD-2018-NB-002643

PATIENT
  Age: 88 Year
  Sex: Male
  Weight: 48 kg

DRUGS (10)
  1. BICALUTAMIDE. [Concomitant]
     Active Substance: BICALUTAMIDE
     Indication: PROSTATE CANCER
     Route: 065
  2. SHIGMABITAN [Concomitant]
     Indication: HYPOVITAMINOSIS
     Route: 065
     Dates: end: 201804
  3. KREMEZIN [Concomitant]
     Active Substance: ACTIVATED CHARCOAL
     Indication: CHRONIC KIDNEY DISEASE
     Route: 065
     Dates: end: 20180402
  4. TAMSULOSIN HYDROCHLORIDE. [Concomitant]
     Active Substance: TAMSULOSIN HYDROCHLORIDE
     Indication: PROSTATE CANCER
     Route: 065
  5. FERRUM [Concomitant]
     Active Substance: FERROUS FUMARATE
     Indication: IRON DEFICIENCY
     Route: 065
     Dates: end: 201805
  6. TRAZENTA [Suspect]
     Active Substance: LINAGLIPTIN
     Indication: DIABETES MELLITUS
     Route: 048
     Dates: end: 20180515
  7. AMALUET [Concomitant]
     Active Substance: AMLODIPINE BESYLATE\ATORVASTATIN CALCIUM
     Indication: HYPERTENSION
     Route: 065
     Dates: end: 201804
  8. MYSLEE [Concomitant]
     Active Substance: ZOLPIDEM TARTRATE
     Indication: INSOMNIA
     Route: 065
  9. AZOSEMIDE [Suspect]
     Active Substance: AZOSEMIDE
     Indication: CHRONIC KIDNEY DISEASE
     Route: 048
     Dates: start: 201803, end: 20180412
  10. TALION (BEPOTASTINE BESYLATE) [Concomitant]
     Active Substance: BEPOTASTINE BESILATE
     Indication: CUTANEOUS SYMPTOM
     Route: 065
     Dates: end: 201804

REACTIONS (4)
  - Device related infection [Recovering/Resolving]
  - Pemphigoid [Fatal]
  - Sepsis [Fatal]
  - Hyperkalaemia [Recovered/Resolved]

NARRATIVE: CASE EVENT DATE: 201803
